FAERS Safety Report 23734070 (Version 2)
Quarter: 2024Q2

REPORT INFORMATION
  Report Type: Spontaneous
  Country: DE (occurrence: DE)
  Receive Date: 20240412
  Receipt Date: 20240419
  Transmission Date: 20240715
  Serious: Yes (Other)
  Sender: FDA-Public Use
  Company Number: DE-ROCHE-3533530

PATIENT
  Age: 22 Year

DRUGS (5)
  1. CYCLOPHOSPHAMIDE [Suspect]
     Active Substance: CYCLOPHOSPHAMIDE
     Indication: Diffuse large B-cell lymphoma
     Dosage: UNK
     Route: 065
  2. DOXORUBICIN [Suspect]
     Active Substance: DOXORUBICIN
     Indication: Diffuse large B-cell lymphoma
     Dosage: UNK
     Route: 065
  3. PREDNISONE [Suspect]
     Active Substance: PREDNISONE
     Indication: Diffuse large B-cell lymphoma
     Dosage: UNK
     Route: 065
  4. POLATUZUMAB VEDOTIN [Suspect]
     Active Substance: POLATUZUMAB VEDOTIN
     Indication: Diffuse large B-cell lymphoma
     Dosage: UNK
     Route: 065
  5. RITUXIMAB [Suspect]
     Active Substance: RITUXIMAB
     Indication: Diffuse large B-cell lymphoma
     Dosage: UNK
     Route: 065

REACTIONS (33)
  - Mediastinal disorder [Unknown]
  - Monocyte count increased [Unknown]
  - Thrombin time shortened [Unknown]
  - Platelet count increased [Recovered/Resolved]
  - Red cell distribution width increased [Unknown]
  - Mean cell haemoglobin decreased [Recovered/Resolved]
  - Night sweats [Unknown]
  - Granulocyte count increased [Unknown]
  - Musculoskeletal chest pain [Unknown]
  - Respiratory rate increased [Unknown]
  - Weight decreased [Unknown]
  - Activated partial thromboplastin time shortened [Unknown]
  - Mean platelet volume decreased [Recovered/Resolved]
  - Movement disorder [Unknown]
  - Antithrombin III increased [Unknown]
  - Snoring [Unknown]
  - White blood cell count increased [Unknown]
  - Blood fibrinogen increased [Unknown]
  - Lymphocyte count decreased [Unknown]
  - Dysphagia [Unknown]
  - Blood calcium decreased [Unknown]
  - Haematocrit decreased [Unknown]
  - Blood lactate dehydrogenase increased [Unknown]
  - Chills [Unknown]
  - Blood lactate dehydrogenase increased [Unknown]
  - Alanine aminotransferase increased [Unknown]
  - Gamma-glutamyltransferase increased [Unknown]
  - Tachycardia [Unknown]
  - General physical health deterioration [Unknown]
  - C-reactive protein increased [Unknown]
  - Haemoglobin decreased [Unknown]
  - Blood bilirubin increased [Unknown]
  - Cough [Unknown]
